FAERS Safety Report 8490810-6 (Version None)
Quarter: 2012Q3

REPORT INFORMATION
  Report Type: 
  Country: None (occurrence: None)
  Receive Date: 20120706
  Receipt Date: 20120626
  Transmission Date: 20120928
  Serious: No
  Sender: FDA-Public Use
  Company Number: US-BIOGENIDEC-2012BI022710

PATIENT
  Sex: Female

DRUGS (3)
  1. AVONEX [Suspect]
     Indication: MULTIPLE SCLEROSIS
     Route: 030
     Dates: end: 20060512
  2. AVONEX [Suspect]
     Route: 030
     Dates: start: 19960719, end: 19980101
  3. AVONEX [Suspect]
     Route: 030
     Dates: start: 20061101

REACTIONS (3)
  - VISUAL IMPAIRMENT [None]
  - ANXIETY [None]
  - GAIT DISTURBANCE [None]
